FAERS Safety Report 5589246-7 (Version None)
Quarter: 2008Q1

REPORT INFORMATION
  Report Type: 
  Country: None (occurrence: None)
  Receive Date: 20080114
  Receipt Date: 20080104
  Transmission Date: 20080703
  Serious: Yes (Hospitalization, Other)
  Sender: FDA-Public Use
  Company Number: PHBS2007BR04542

PATIENT
  Age: 83 Year
  Sex: Female

DRUGS (4)
  1. EXELON [Suspect]
     Indication: DEMENTIA ALZHEIMER'S TYPE
     Dosage: 1 MG/D
     Route: 048
     Dates: start: 20070101
  2. EXELON [Suspect]
     Dosage: 3 MG, BID
  3. EXELON [Suspect]
     Dosage: 1.5 MG, BID
     Route: 048
  4. CAPTOPRIL [Concomitant]
     Indication: HYPERTENSION
     Dosage: 12.5 MG, QD
     Route: 048
     Dates: start: 20070101

REACTIONS (29)
  - ABNORMAL FAECES [None]
  - ANAEMIA [None]
  - BLOOD GLUCOSE INCREASED [None]
  - BLOOD PRESSURE DECREASED [None]
  - BREAST CANCER FEMALE [None]
  - CELLULITIS [None]
  - CONSTIPATION [None]
  - DIARRHOEA [None]
  - DRUG DOSE OMISSION [None]
  - DYSENTERY [None]
  - DYSPHAGIA [None]
  - EATING DISORDER [None]
  - FEMUR FRACTURE [None]
  - GAIT DISTURBANCE [None]
  - GASTROENTERITIS ROTAVIRUS [None]
  - HAEMOGLOBIN DECREASED [None]
  - HIP SURGERY [None]
  - HYPERHIDROSIS [None]
  - INCISION SITE COMPLICATION [None]
  - MASTECTOMY [None]
  - MEMORY IMPAIRMENT [None]
  - MOOD ALTERED [None]
  - PYREXIA [None]
  - STOMACH DISCOMFORT [None]
  - URINARY TRACT INFECTION [None]
  - URINE ODOUR ABNORMAL [None]
  - VIRAL INFECTION [None]
  - VOMITING [None]
  - WOUND INFECTION [None]
